FAERS Safety Report 5813276-0 (Version None)
Quarter: 2008Q3

REPORT INFORMATION
  Report Type: 
  Country: None (occurrence: None)
  Receive Date: 20080717
  Receipt Date: 20080709
  Transmission Date: 20090109
  Serious: Yes (Other)
  Sender: FDA-Public Use
  Company Number: DE-JNJFOC-20080702157

PATIENT

DRUGS (6)
  1. INVEGA [Suspect]
     Route: 048
  2. INVEGA [Suspect]
     Indication: SCHIZOAFFECTIVE DISORDER
     Route: 048
  3. TREVILOR [Concomitant]
     Route: 048
  4. CLOZAPINE [Concomitant]
     Route: 048
  5. VALPROATE SODIUM [Concomitant]
     Route: 048
  6. LITHIUM [Concomitant]
     Route: 065

REACTIONS (3)
  - DEPRESSION [None]
  - MYOCLONUS [None]
  - STARING [None]
